FAERS Safety Report 8083169-X (Version None)
Quarter: 2012Q1

REPORT INFORMATION
  Report Type: 
  Country: None (occurrence: None)
  Receive Date: 20120127
  Receipt Date: 20110214
  Transmission Date: 20120608
  Serious: No
  Sender: FDA-Public Use
  Company Number: US-ABBOTT-11P-163-0705265-00

PATIENT
  Age: 82 Year
  Sex: Female

DRUGS (2)
  1. RESTASIS [Concomitant]
     Indication: DRY EYE
     Dosage: 1 DROP IN EACH EYE IN AM AND PM
  2. HUMIRA [Suspect]
     Indication: PSORIASIS
     Dates: start: 20110101, end: 20110206

REACTIONS (11)
  - ABNORMAL FAECES [None]
  - ARTHRALGIA [None]
  - HYPERHIDROSIS [None]
  - PAIN [None]
  - INFLUENZA [None]
  - PULMONARY CONGESTION [None]
  - PYREXIA [None]
  - VISUAL ACUITY REDUCED [None]
  - COUGH [None]
  - CHEST PAIN [None]
  - HEADACHE [None]
